FAERS Safety Report 5663802-X (Version None)
Quarter: 2008Q1

REPORT INFORMATION
  Report Type: 
  Country: None (occurrence: None)
  Receive Date: 20080310
  Receipt Date: 20080228
  Transmission Date: 20080703
  Serious: Yes (Life-Threatening, Hospitalization, Other)
  Sender: FDA-Public Use
  Company Number: 2008US-13321

PATIENT
  Age: 62 Year
  Sex: Male

DRUGS (49)
  1. ISOPTIN SR [Suspect]
     Indication: ATRIAL FIBRILLATION
     Dosage: 80 MG, BID, ORAL
     Route: 048
     Dates: start: 20050709
  2. ACETYLCYSTEINE [Suspect]
     Indication: MUCOUS MEMBRANE DISORDER
     Dosage: 300 MG, BID, ORAL
     Route: 048
     Dates: start: 20050629, end: 20050712
  3. RAMIPRIL [Suspect]
     Indication: CORONARY ARTERY DISEASE
     Dosage: 1 IN 1 D, ORAL
     Route: 048
     Dates: start: 20050630, end: 20050702
  4. AVELOX [Suspect]
     Indication: CHRONIC OBSTRUCTIVE PULMONARY DISEASE
     Dosage: 400 MG, QD, ORAL
     Route: 048
     Dates: start: 20050627, end: 20050703
  5. DISTRANEURIN (CLOMETHIAZOLE) [Suspect]
     Indication: ALCOHOL WITHDRAWAL SYNDROME
     Dosage: 2 DOSAGE FORMS, 3 IN 1 D, ORAL
     Route: 048
     Dates: start: 20050630, end: 20050703
  6. HALOPERIDOL (TROPFEN) [Suspect]
     Indication: SEDATION
     Dosage: 10 GTT, QD, ORAL; 10 GTT, QD, ORAL
     Route: 048
     Dates: start: 20050629, end: 20050630
  7. HALOPERIDOL (TROPFEN) [Suspect]
     Indication: SEDATION
     Dosage: 10 GTT, QD, ORAL; 10 GTT, QD, ORAL
     Route: 048
     Dates: start: 20050703, end: 20050703
  8. RINGER'S [Suspect]
     Indication: FLUID REPLACEMENT
     Dosage: 1000 ML, QD, INTRAVENOUS
     Route: 042
     Dates: start: 20050627, end: 20050703
  9. CLONIDINE HCL [Suspect]
     Indication: ALCOHOL WITHDRAWAL SYNDROME
     Dosage: 1.5 MG, QD, INTRAVENOUS; 1.5 MG, QD, INTRAVENOUS
     Route: 042
     Dates: start: 20050628, end: 20050630
  10. CLONIDINE HCL [Suspect]
     Indication: ALCOHOL WITHDRAWAL SYNDROME
     Dosage: 1.5 MG, QD, INTRAVENOUS; 1.5 MG, QD, INTRAVENOUS
     Route: 042
     Dates: start: 20050703, end: 20050704
  11. CLORAZEPATE DIPOTASSIUM [Suspect]
     Indication: SEDATION
     Dosage: 5 MG, TID + 10MG AT NIGHT, ORAL; 5 MG, TID + 10 MG AT NIGHT, ORAL
     Route: 048
     Dates: start: 20050627, end: 20050702
  12. CLORAZEPATE DIPOTASSIUM [Suspect]
     Indication: SEDATION
     Dosage: 5 MG, TID + 10MG AT NIGHT, ORAL; 5 MG, TID + 10 MG AT NIGHT, ORAL
     Route: 048
     Dates: start: 20050705, end: 20050705
  13. HEPARIN [Suspect]
     Indication: THROMBOSIS PROPHYLAXIS
     Dosage: 25000 IU, ,SUBCUTANEOUS
     Route: 058
     Dates: start: 20050627, end: 20050709
  14. BRICANYL [Suspect]
     Indication: DYSPNOEA
     Dosage: 1 AMPOULE, SUBCUTANEOUS
     Route: 058
     Dates: start: 20050627, end: 20050709
  15. BECLOMETHASONE DIPROPIONATE [Suspect]
     Indication: CHRONIC OBSTRUCTIVE PULMONARY DISEASE
     Dosage: 2 IN 1 D, OTHER
     Route: 050
     Dates: start: 20050627, end: 20050715
  16. FORADIL (FORMOTEROL) I [Suspect]
     Indication: CHRONIC OBSTRUCTIVE PULMONARY DISEASE
     Dosage: 2 IN 1 D, OTHER
     Route: 050
     Dates: start: 20050629, end: 20050718
  17. PANTOPRAZOLE SODIUM [Suspect]
     Indication: GASTRIC DISORDER
     Dosage: 40 MG, QD, ORAL; ORAL
     Route: 048
     Dates: start: 20050629, end: 20050630
  18. PANTOPRAZOLE SODIUM [Suspect]
     Indication: PROPHYLAXIS
     Dosage: 40 MG, QD, ORAL; ORAL
     Route: 048
     Dates: start: 20050629, end: 20050630
  19. PANTOPRAZOLE SODIUM [Suspect]
     Indication: GASTRIC DISORDER
     Dosage: 40 MG, QD, ORAL; ORAL
     Route: 048
     Dates: start: 20050703, end: 20050718
  20. PANTOPRAZOLE SODIUM [Suspect]
     Indication: PROPHYLAXIS
     Dosage: 40 MG, QD, ORAL; ORAL
     Route: 048
     Dates: start: 20050703, end: 20050718
  21. THEOPHYLLINE [Suspect]
     Indication: CHRONIC OBSTRUCTIVE PULMONARY DISEASE
     Dosage: 600 MG, QD, ORAL; 600 MG,; 200 MG - 600 MG, INTRAVENOUS; 200 MG, INTRAVENOUS; 200 MG, INTRAVENOUS
     Dates: start: 20050627, end: 20050630
  22. THEOPHYLLINE [Suspect]
     Indication: CHRONIC OBSTRUCTIVE PULMONARY DISEASE
     Dosage: 600 MG, QD, ORAL; 600 MG,; 200 MG - 600 MG, INTRAVENOUS; 200 MG, INTRAVENOUS; 200 MG, INTRAVENOUS
     Dates: start: 20050703, end: 20050709
  23. THEOPHYLLINE [Suspect]
     Indication: CHRONIC OBSTRUCTIVE PULMONARY DISEASE
     Dosage: 600 MG, QD, ORAL; 600 MG,; 200 MG - 600 MG, INTRAVENOUS; 200 MG, INTRAVENOUS; 200 MG, INTRAVENOUS
     Dates: start: 20050718, end: 20050718
  24. THEOPHYLLINE [Suspect]
     Indication: CHRONIC OBSTRUCTIVE PULMONARY DISEASE
     Dosage: 600 MG, QD, ORAL; 600 MG,; 200 MG - 600 MG, INTRAVENOUS; 200 MG, INTRAVENOUS; 200 MG, INTRAVENOUS
     Dates: start: 20050721, end: 20050721
  25. BEROTEC (FENOTEROL) [Suspect]
     Indication: CHRONIC OBSTRUCTIVE PULMONARY DISEASE
     Dosage: 2-3 TIMES, WEEKLY, OTHER
     Route: 050
     Dates: start: 20040601
  26. SPIRIVA [Suspect]
     Indication: CHRONIC OBSTRUCTIVE PULMONARY DISEASE
     Dosage: 1 IN 1 D, OTHER
     Route: 050
     Dates: start: 20040601
  27. PREDNISOLONE [Suspect]
     Indication: CHRONIC OBSTRUCTIVE PULMONARY DISEASE
     Dosage: 20 MG, QD, ORAL; 50 MG, QD, ORAL; 80 MG, QD, ORAL; 5 MG, ORAL
     Route: 048
     Dates: start: 20050628, end: 20050705
  28. PREDNISOLONE [Suspect]
     Indication: CHRONIC OBSTRUCTIVE PULMONARY DISEASE
     Dosage: 20 MG, QD, ORAL; 50 MG, QD, ORAL; 80 MG, QD, ORAL; 5 MG, ORAL
     Route: 048
     Dates: start: 20050707, end: 20050715
  29. PREDNISOLONE [Suspect]
     Indication: CHRONIC OBSTRUCTIVE PULMONARY DISEASE
     Dosage: 20 MG, QD, ORAL; 50 MG, QD, ORAL; 80 MG, QD, ORAL; 5 MG, ORAL
     Route: 048
     Dates: start: 20050719
  30. AMBROXOL [Suspect]
     Indication: MUCOUS MEMBRANE DISORDER
     Dosage: 14 GTT, BID, ORAL
     Route: 048
     Dates: start: 20050701, end: 20050718
  31. NITRO IV [Suspect]
     Indication: HYPERTENSION
     Dosage: 50 MG, , INTRAVENOUS
     Route: 042
     Dates: start: 20050702, end: 20050702
  32. ALT-INSULIN (INSULIN) [Suspect]
     Indication: BLOOD GLUCOSE
     Dosage: SUBCUTANEOUS
     Route: 058
     Dates: start: 20050703, end: 20050703
  33. DELIX PLUS (RAMIPRIL, HYDROCHLOROTHIAZID) [Suspect]
     Indication: CARDIAC DISORDER
     Dosage: ORAL
     Route: 048
  34. NORVASC [Suspect]
     Indication: CARDIAC DISORDER
     Dosage: 5 MG, QD, ORAL
     Route: 048
     Dates: start: 20050704, end: 20050709
  35. KALINOR-BRAUSETABLETTEN (KALIUMCITRAT, KHCO3) [Suspect]
     Indication: HYPOKALAEMIA
     Dosage: 1 IN 1 D, ORAL
     Route: 048
     Dates: start: 20050704, end: 20050714
  36. FUROSEMIDE [Suspect]
     Indication: HYPERTENSION
     Dosage: 40 MG, QD, ORAL
     Route: 048
     Dates: start: 20050707
  37. OXAZEPAM [Suspect]
     Indication: SEDATION
     Dosage: ORAL
     Route: 048
     Dates: start: 20050708, end: 20050708
  38. DIGIMERCK (DIGITOXIN) [Suspect]
     Indication: CARDIAC DISORDER
     Dosage: 0.1 MG, QD, ORAL
     Route: 048
     Dates: start: 20050708
  39. MARCUMAR [Suspect]
     Indication: ATRIAL FIBRILLATION
     Dosage: ORAL
     Route: 048
     Dates: start: 20050710
  40. CA-MINERALIEN (CALCIUM) [Suspect]
     Indication: OSTEOPOROSIS
     Dosage: 500 MG, BID, ORAL
     Route: 048
     Dates: start: 20050715, end: 20050718
  41. PREDNISOLONE [Suspect]
     Indication: CHRONIC OBSTRUCTIVE PULMONARY DISEASE
     Dosage: 15 MG, QD, ORAL; 100 MG, QD, ORAL
     Route: 048
     Dates: start: 20050716, end: 20050718
  42. PREDNISOLONE [Suspect]
     Indication: CHRONIC OBSTRUCTIVE PULMONARY DISEASE
     Dosage: 15 MG, QD, ORAL; 100 MG, QD, ORAL
     Route: 048
     Dates: start: 20050721, end: 20050721
  43. VIGANTOLETTEN (COLECALCIFEROL) [Suspect]
     Indication: OSTEOPOROSIS
     Dosage: 1000 IU, QD, ORAL
     Route: 048
     Dates: start: 20050718, end: 20050718
  44. ATMADISC (SALMETEROL, FLUTICASON) [Suspect]
     Indication: CHRONIC OBSTRUCTIVE PULMONARY DISEASE
     Dosage: OTHER
     Route: 050
  45. VERAPAMIL HCL [Suspect]
     Indication: TACHYARRHYTHMIA
     Dosage: 80 MG-240MG, DAILY, ORAL; 80 MG, TID, ORAL
     Route: 048
     Dates: start: 20050718
  46. OMEPRAZOLE [Suspect]
     Indication: GASTRIC DISORDER
     Dosage: 20 MG, ONCE IN EVENING, ORAL
     Route: 048
     Dates: start: 20050719
  47. OMEPRAZOLE [Suspect]
     Indication: PROPHYLAXIS
     Dosage: 20 MG, ONCE IN EVENING, ORAL
     Route: 048
     Dates: start: 20050719
  48. OSTEOPLUS BT (CACO3, COLECALOIFEROL) [Suspect]
     Indication: OSTEOPOROSIS
     Dosage: 2 IN 1 D, ORAL
     Route: 048
     Dates: start: 20050719
  49. SALUTEC [Concomitant]
     Indication: CARDIAC DISORDER
     Dosage: 5/25 DAILY, ORAL
     Route: 048
     Dates: start: 20050703

REACTIONS (8)
  - ALCOHOL WITHDRAWAL SYNDROME [None]
  - ATRIAL FIBRILLATION [None]
  - BLOOD GLUCOSE ABNORMAL [None]
  - HYPERTENSION [None]
  - HYPOKALAEMIA [None]
  - OSTEOPOROSIS [None]
  - STEVENS-JOHNSON SYNDROME [None]
  - TOXIC EPIDERMAL NECROLYSIS [None]
